FAERS Safety Report 10213286 (Version 1)
Quarter: 2014Q2

REPORT INFORMATION
  Report Type: Spontaneous
  Country: US (occurrence: None)
  Receive Date: 20140529
  Receipt Date: 20140529
  Transmission Date: 20141212
  Serious: Yes (Hospitalization)
  Sender: FDA-Public Use
  Company Number: SP07866

PATIENT
  Age: 69 Year
  Sex: Female

DRUGS (7)
  1. XIFAXAN [Suspect]
     Indication: NON-ALCOHOLIC STEATOHEPATITIS
     Route: 048
     Dates: start: 2012
  2. FLUOXETINE [Concomitant]
  3. FUROSEMIDE [Concomitant]
  4. SPIRONOLACTONE [Concomitant]
  5. PROPRANOLOL [Concomitant]
  6. CLONAZEPAM [Concomitant]
  7. ROPINIROLE [Concomitant]

REACTIONS (6)
  - Haemorrhage [None]
  - Ammonia increased [None]
  - Candida infection [None]
  - Nausea [None]
  - Tremor [None]
  - Gait disturbance [None]
